FAERS Safety Report 18259051 (Version 1)
Quarter: 2020Q3

REPORT INFORMATION
  Report Type: Spontaneous
  Country: US (occurrence: US)
  Receive Date: 20200911
  Receipt Date: 20200911
  Transmission Date: 20201103
  Serious: Yes (Death, Other)
  Sender: FDA-Public Use
  Company Number: US-PURDUE-USA-2020-0165701

PATIENT
  Age: 26 Year
  Sex: Male

DRUGS (1)
  1. OXYCONTIN [Suspect]
     Active Substance: OXYCODONE HYDROCHLORIDE
     Indication: CLAVICLE FRACTURE
     Dosage: UNK
     Route: 048
     Dates: start: 2001

REACTIONS (9)
  - Depression [Unknown]
  - Pain [Unknown]
  - Post-traumatic stress disorder [Unknown]
  - Death [Fatal]
  - Road traffic accident [Unknown]
  - Overdose [Unknown]
  - Emotional distress [Unknown]
  - Mental disorder [Unknown]
  - Dependence [Unknown]
